FAERS Safety Report 19935807 (Version 1)
Quarter: 2021Q4

REPORT INFORMATION
  Report Type: Spontaneous
  Country: CA (occurrence: CA)
  Receive Date: 20211008
  Receipt Date: 20211008
  Transmission Date: 20220303
  Serious: Yes (Other)
  Sender: FDA-Public Use
  Company Number: CA-TEVA-2021-CA-1961818

PATIENT
  Age: 63 Year
  Sex: Female

DRUGS (2)
  1. OXALIPLATIN [Suspect]
     Active Substance: OXALIPLATIN
  2. FLUOROURACIL [Concomitant]
     Active Substance: FLUOROURACIL

REACTIONS (5)
  - Acute kidney injury [Unknown]
  - Anaemia [Unknown]
  - Haematuria [Unknown]
  - Hypophagia [Unknown]
  - Vomiting [Unknown]
